FAERS Safety Report 11170799 (Version 1)
Quarter: 2015Q2

REPORT INFORMATION
  Report Type: Spontaneous
  Country: US (occurrence: None)
  Receive Date: 20150515
  Receipt Date: 20150515
  Transmission Date: 20150821
  Serious: Yes (Other)
  Sender: FDA-Public Use
  Company Number: 2014014745

PATIENT
  Age: 52 Year
  Sex: Female
  Weight: 131.5 kg

DRUGS (10)
  1. VITAMIN B12 (HYDROXOCOALAMIN) [Concomitant]
  2. TOPROL XL [Concomitant]
     Active Substance: METOPROLOL SUCCINATE
  3. KCL [Concomitant]
     Active Substance: POTASSIUM CHLORIDE
  4. MAGNESIUM (MAGNESIUM HYDROXIDE) [Concomitant]
  5. LEVOTHYROXINE (LEVOTHYROXINE SODIUM) [Concomitant]
  6. VITAMIN E (TOCOPHERYL ACETATE) [Concomitant]
  7. CIMZIA [Suspect]
     Active Substance: CERTOLIZUMAB PEGOL
     Indication: CROHN^S DISEASE
     Dates: start: 20140917, end: 20141106
  8. SERTRALINE [Concomitant]
     Active Substance: SERTRALINE HYDROCHLORIDE
  9. VITAMIN D (COLECALCIFEROL) [Concomitant]
  10. MULTIVITAMIN (VITAMINS NOS) [Concomitant]
     Active Substance: VITAMINS

REACTIONS (8)
  - Abdominal pain lower [None]
  - Off label use [None]
  - Arrhythmia [None]
  - Crohn^s disease [None]
  - Pollakiuria [None]
  - Diarrhoea [None]
  - Extrasystoles [None]
  - Inappropriate schedule of drug administration [None]

NARRATIVE: CASE EVENT DATE: 20140917
